FAERS Safety Report 6716219-0 (Version None)
Quarter: 2010Q2

REPORT INFORMATION
  Report Type: 
  Country: None (occurrence: None)
  Receive Date: 20100506
  Receipt Date: 20100506
  Transmission Date: 20101027
  Serious: Yes (Disabling, Other)
  Sender: FDA-Public Use
  Company Number: None

PATIENT
  Age: 3 Year
  Sex: Male
  Weight: 14.5151 kg

DRUGS (1)
  1. SINGULAIR [Suspect]
     Indication: ASTHMA
     Dosage: ONE TABLE DAILY AT NIGHT PO
     Route: 048
     Dates: start: 20091001, end: 20100324

REACTIONS (6)
  - AGGRESSION [None]
  - ANGER [None]
  - CRYING [None]
  - DRUG INTERACTION [None]
  - SCREAMING [None]
  - VIRAL INFECTION [None]
